FAERS Safety Report 13908716 (Version 2)
Quarter: 2025Q1

REPORT INFORMATION
  Report Type: Report from Study
  Country: US (occurrence: US)
  Receive Date: 20170827
  Receipt Date: 20250320
  Transmission Date: 20250408
  Serious: Yes (Death, Hospitalization, Other)
  Sender: TAKEDA
  Company Number: US-KAMADA LIMITED-2017US003338

PATIENT
  Sex: Female
  Weight: 79 kg

DRUGS (7)
  1. GLASSIA [Suspect]
     Active Substance: .ALPHA.1-PROTEINASE INHIBITOR HUMAN
     Indication: Alpha-1 antitrypsin deficiency
     Dosage: 60 MILLIGRAM/KILOGRAM, 1/WEEK
     Dates: start: 20150430
  2. GLASSIA [Suspect]
     Active Substance: .ALPHA.1-PROTEINASE INHIBITOR HUMAN
     Dosage: 3624 MILLIGRAM, 1/WEEK
     Dates: start: 201605
  3. GLASSIA [Suspect]
     Active Substance: .ALPHA.1-PROTEINASE INHIBITOR HUMAN
     Dosage: 60 MILLIGRAM/KILOGRAM, 1/WEEK
  4. SPIRIVA [Concomitant]
     Active Substance: TIOTROPIUM BROMIDE MONOHYDRATE
  5. DALIRESP [Concomitant]
     Active Substance: ROFLUMILAST
  6. ALBUTEROL [Concomitant]
     Active Substance: ALBUTEROL
  7. BREO ELLIPTA [Concomitant]
     Active Substance: FLUTICASONE FUROATE\VILANTEROL TRIFENATATE

REACTIONS (2)
  - Transplant failure [Fatal]
  - Respiratory syncytial virus infection [Not Recovered/Not Resolved]
